FAERS Safety Report 6764598-0 (Version None)
Quarter: 2010Q2

REPORT INFORMATION
  Report Type: 
  Country: None (occurrence: None)
  Receive Date: 20100610
  Receipt Date: 20100527
  Transmission Date: 20101027
  Serious: Yes (Hospitalization)
  Sender: FDA-Public Use
  Company Number: DE-MYLANLABS-2010S1004539

PATIENT
  Age: 89 Year
  Sex: Female
  Weight: 71 kg

DRUGS (8)
  1. IBUPROFEN [Suspect]
     Indication: BACK PAIN
     Route: 048
     Dates: end: 20090824
  2. ATACAND [Suspect]
     Indication: HYPERTENSION
     Route: 048
     Dates: start: 20080109, end: 20090824
  3. LYRICA [Suspect]
     Indication: NEUROPATHY PERIPHERAL
     Route: 048
  4. SPIRO COMP [Suspect]
     Indication: HYPERTENSION
     Dosage: 1 DF= 50MG SPIRONOLACTON + 20MG FUROSEMID
     Route: 048
     Dates: end: 20090824
  5. INSULIN ACTRAPHANE /00646002/ [Concomitant]
     Indication: TYPE 2 DIABETES MELLITUS
     Dosage: DOSIS/APPLIKATION: 18-12-0 IU
     Route: 058
     Dates: start: 20071201
  6. CARMEN [Concomitant]
     Indication: HYPERTENSION
     Route: 048
     Dates: start: 20040210, end: 20090824
  7. OMEPRAZOLE [Concomitant]
     Indication: PROPHYLAXIS AGAINST GASTROINTESTINAL ULCER
     Route: 048
     Dates: start: 20040901
  8. TRAMADOL [Concomitant]
     Indication: NEUROPATHY PERIPHERAL
     Route: 048

REACTIONS (2)
  - HYPERKALAEMIA [None]
  - RENAL IMPAIRMENT [None]
